FAERS Safety Report 14268640 (Version 1)
Quarter: 2017Q4

REPORT INFORMATION
  Report Type: Spontaneous
  Country: US (occurrence: US)
  Receive Date: 20171211
  Receipt Date: 20171211
  Transmission Date: 20180321
  Serious: Yes (Other)
  Sender: FDA-Public Use
  Company Number: US-LPDUSPRD-20171669

PATIENT
  Age: 21 Year
  Sex: Female

DRUGS (7)
  1. NICARDIPINE HYDROCHLORIDE INJECTION (0735-10) [Concomitant]
     Dosage: UNKNOWN
     Route: 042
  2. FUROSEMIDE INJECTION, USP (5702-25) [Concomitant]
     Active Substance: FUROSEMIDE
     Dosage: DAY 1: TWO DOSES  OF 10 MG
     Route: 042
  3. LACTATED RINGERS SOLUTION [Concomitant]
     Active Substance: CALCIUM CHLORIDE\POTASSIUM CHLORIDE\SODIUM CHLORIDE\SODIUM LACTATE
     Dosage: 25 ML/H
     Route: 042
  4. HYDRALAZINE HCL INJECTION, USP (0901-25) [Concomitant]
     Active Substance: HYDRALAZINE HYDROCHLORIDE
     Dosage: THREE DOSES; TOTAL 25 MG
     Route: 042
  5. MAGNESIUM SULFATE INJECTION, USP (2602-25) [Suspect]
     Active Substance: MAGNESIUM SULFATE
     Dosage: 25 ML/H
     Route: 042
  6. LABETALOL [Concomitant]
     Active Substance: LABETALOL\LABETALOL HYDROCHLORIDE
     Dosage: ONE DOSE; 20 MG
     Route: 042
  7. KAYEXALATE [Concomitant]
     Active Substance: SODIUM POLYSTYRENE SULFONATE
     Dosage: ONE DOSE; 15 G
     Route: 065

REACTIONS (5)
  - Product preparation error [Unknown]
  - Hyperkalaemia [Unknown]
  - Exposure during pregnancy [Unknown]
  - Hypocalcaemia [Unknown]
  - Hypermagnesaemia [Unknown]
